FAERS Safety Report 13790610 (Version 1)
Quarter: 2017Q3

REPORT INFORMATION
  Report Type: Spontaneous
  Country: US (occurrence: US)
  Receive Date: 20170725
  Receipt Date: 20170725
  Transmission Date: 20171127
  Serious: No
  Sender: FDA-Public Use
  Company Number: US-GALDERMA-US17003447

PATIENT
  Sex: Female

DRUGS (2)
  1. DIFFERIN GEL [Suspect]
     Active Substance: ADAPALENE
     Indication: ACNE
     Dosage: 0.1%
     Route: 061
     Dates: start: 201703, end: 201704
  2. L^OREAL SELF TANNER [Concomitant]
     Route: 061

REACTIONS (6)
  - Eyelid irritation [Recovering/Resolving]
  - Skin burning sensation [Recovering/Resolving]
  - Eye discharge [Recovering/Resolving]
  - Dry skin [Recovering/Resolving]
  - Eyelids pruritus [Recovering/Resolving]
  - Pain of skin [Recovering/Resolving]
